FAERS Safety Report 8710881 (Version 2)
Quarter: 2013Q1

REPORT INFORMATION
  Report Type: Spontaneous
  Country: BR (occurrence: BR)
  Receive Date: 20120807
  Receipt Date: 20130305
  Transmission Date: 20140127
  Serious: Yes (Other)
  Sender: FDA-Public Use
  Company Number: PHHY2012BR067449

PATIENT
  Sex: Female

DRUGS (4)
  1. SYNTHROID [Concomitant]
     Indication: THYROID DISORDER
     Dosage: 1 DF, DAILY
     Route: 048
  2. TEGRETOL CR [Suspect]
     Indication: CONVULSION
     Dosage: 1.5 DF, (IN THE MORNING AND NIGHT)
  3. DEPAKENE [Suspect]
     Indication: CONVULSION
     Dosage: 4 DF, DAILY
     Route: 048
  4. PILOCARPINE [Concomitant]
     Indication: GLAUCOMA
     Dosage: 1 GTT, QID

REACTIONS (3)
  - Epilepsy [Recovered/Resolved]
  - Feeling drunk [Unknown]
  - Musculoskeletal stiffness [Unknown]
